FAERS Safety Report 8069349-8 (Version None)
Quarter: 2012Q1

REPORT INFORMATION
  Report Type: 
  Country: None (occurrence: None)
  Receive Date: 20120125
  Receipt Date: 20120120
  Transmission Date: 20120608
  Serious: Yes (Hospitalization)
  Sender: FDA-Public Use
  Company Number: NL-AMGEN-NLDSP2011062214

PATIENT
  Age: 61 Year
  Sex: Female
  Weight: 61 kg

DRUGS (10)
  1. DOXORUBICIN HCL [Suspect]
     Indication: DIFFUSE LARGE B-CELL LYMPHOMA
     Dosage: 80 MG, UNK
     Route: 042
     Dates: start: 20110530, end: 20110919
  2. VALACICLOVIR [Concomitant]
     Indication: PROPHYLAXIS
     Dosage: 500 ABSENT, BID
     Route: 048
     Dates: start: 20110530
  3. RITUXIMAB [Suspect]
     Indication: DIFFUSE LARGE B-CELL LYMPHOMA
     Dosage: 650 MG, UNK
     Route: 042
     Dates: start: 20110530, end: 20110919
  4. CYCLOPHOSPHAMIDE [Suspect]
     Indication: DIFFUSE LARGE B-CELL LYMPHOMA
     Dosage: 1300 MG, UNK
     Route: 042
     Dates: start: 20110530, end: 20110919
  5. COTRIMOXIN [Concomitant]
     Dosage: 480 MG, UNK
     Dates: start: 20110530
  6. PREDNISONE [Suspect]
     Indication: DIFFUSE LARGE B-CELL LYMPHOMA
     Dosage: 50 ABSENT, BID
     Route: 048
     Dates: start: 20110530, end: 20110923
  7. NEUPOGEN [Suspect]
     Indication: DIFFUSE LARGE B-CELL LYMPHOMA
     Dosage: 6 MG, UNK
     Route: 058
     Dates: start: 20110531, end: 20110901
  8. ISONIAZID [Concomitant]
     Indication: PROPHYLAXIS
     Dosage: 300 MG, UNK
     Route: 048
  9. VINBLASTINE SULFATE [Suspect]
     Dosage: 20 MG, UNK
     Route: 042
     Dates: start: 20110905, end: 20110919
  10. VINCRISTINE [Suspect]
     Indication: DIFFUSE LARGE B-CELL LYMPHOMA
     Dosage: 90 MG, UNK
     Route: 042
     Dates: start: 20110530, end: 20110919

REACTIONS (1)
  - CARDIOMYOPATHY [None]
